FAERS Safety Report 5953926-1 (Version None)
Quarter: 2008Q4

REPORT INFORMATION
  Report Type: 
  Country: None (occurrence: None)
  Receive Date: 20081114
  Receipt Date: 20081103
  Transmission Date: 20090506
  Serious: Yes (Other)
  Sender: FDA-Public Use
  Company Number: DE-PFIZER INC-2008094059

PATIENT
  Age: 70 Year
  Sex: Male

DRUGS (6)
  1. VFEND [Suspect]
     Indication: FUNGAL INFECTION
     Dates: start: 20081025
  2. VFEND [Interacting]
  3. PROGRAF [Interacting]
     Indication: IMMUNOSUPPRESSION
     Dates: start: 20080101, end: 20080101
  4. CELLCEPT [Concomitant]
  5. COTRIM [Concomitant]
  6. TORSEMIDE [Concomitant]

REACTIONS (5)
  - DRUG INTERACTION [None]
  - OEDEMA PERIPHERAL [None]
  - OLIGURIA [None]
  - SLEEP DISORDER [None]
  - VITREOUS HAEMORRHAGE [None]
